FAERS Safety Report 17044449 (Version 1)
Quarter: 2019Q4

REPORT INFORMATION
  Report Type: Spontaneous
  Country: US (occurrence: US)
  Receive Date: 20191117
  Receipt Date: 20191117
  Transmission Date: 20200122
  Serious: Yes (Other)
  Sender: FDA-Public Use
  Company Number: None

PATIENT
  Age: 28 Year
  Sex: Female
  Weight: 60.75 kg

DRUGS (3)
  1. NATURE-THROID [Suspect]
     Active Substance: THYROID, PORCINE
     Indication: HYPOTHYROIDISM
     Dosage: ?          QUANTITY:30 TABLET(S);?
     Route: 048
     Dates: start: 20190917, end: 20191117
  2. CYTOMEL [Concomitant]
     Active Substance: LIOTHYRONINE SODIUM
  3. ARMOUR THYROID [Suspect]
     Active Substance: THYROID, PORCINE
     Indication: HYPOTHYROIDISM
     Dosage: ?          QUANTITY:1 TABLET(S);?
     Route: 048

REACTIONS (12)
  - Influenza [None]
  - Palpitations [None]
  - Inflammatory marker increased [None]
  - Toxicity to various agents [None]
  - Swelling [None]
  - Thyroid disorder [None]
  - Malaise [None]
  - Weight increased [None]
  - Product quality issue [None]
  - Influenza like illness [None]
  - Product odour abnormal [None]
  - Thyroid hormones decreased [None]

NARRATIVE: CASE EVENT DATE: 20190928
